FAERS Safety Report 7849701 (Version 7)
Quarter: 2013Q1

REPORT INFORMATION
  Report Type: Report from Study
  Country: FR (occurrence: FR)
  Receive Date: 20110310
  Receipt Date: 20130124
  Transmission Date: 20140127
  Serious: Yes (Death, Life-Threatening, Hospitalization, Other)
  Sender: FDA-Public Use
  Company Number: PHHO2011FR01386

PATIENT
  Age: 65 Year
  Sex: Male
  Weight: 68 kg

DRUGS (33)
  1. EVEROLIMUS [Suspect]
     Indication: RENAL TRANSPLANT
     Dosage: 3 MG, QD
     Route: 048
     Dates: start: 20110202, end: 20110209
  2. NEORAL [Suspect]
     Indication: RENAL TRANSPLANT
     Dosage: 400 MG, QD
     Route: 048
     Dates: start: 20110117, end: 20110201
  3. NEORAL [Suspect]
     Dosage: 400 MG, QD
     Route: 048
     Dates: start: 20110210
  4. NEORAL [Suspect]
     Dosage: 100 MG, QD
     Route: 048
     Dates: start: 20110227, end: 20110316
  5. NEORAL [Suspect]
     Dosage: UNK
     Route: 048
  6. CELLCEPT [Suspect]
     Indication: RENAL TRANSPLANT
     Dosage: 2 G, PER DAY
     Route: 048
     Dates: start: 20110115, end: 20110209
  7. CELLCEPT [Suspect]
     Dosage: 1 G, PER DAY
     Route: 048
     Dates: start: 20110301, end: 20110308
  8. CORTANCYL [Suspect]
     Indication: RENAL TRANSPLANT
     Dosage: 20 MG, BID
     Route: 048
     Dates: start: 20110116
  9. BACTRIM [Suspect]
     Dosage: 400 MG, PER DAY
     Route: 048
     Dates: start: 20110124, end: 20110201
  10. AZANTAC [Suspect]
     Dosage: 150 MG, PER DAY
     Route: 048
     Dates: start: 20110202
  11. ROVALCYTE [Suspect]
     Dosage: 250 MG, 9QD
     Route: 048
     Dates: start: 20110129, end: 20110201
  12. NEXIUM [Suspect]
     Dosage: 40 MG, PER DAY
     Route: 048
     Dates: start: 20110116, end: 20110201
  13. SIMULECT [Concomitant]
     Indication: RENAL TRANSPLANT
     Dosage: 20 MG, DAILY
     Dates: start: 20110115, end: 20110115
  14. SOLU-MEDROL [Concomitant]
     Indication: RENAL TRANSPLANT
     Dosage: 500 MG, DAILY
     Route: 042
     Dates: start: 20110115, end: 20110115
  15. LASILIX [Concomitant]
  16. EPREX [Concomitant]
  17. ADANCOR [Concomitant]
  18. NITRIDERM TTS [Concomitant]
  19. ESOMEPRAZOLE [Concomitant]
  20. CALCIDIA [Concomitant]
  21. AMLOR [Concomitant]
  22. INSULATARD [Concomitant]
  23. NORSET [Concomitant]
  24. ECONAZOLE [Concomitant]
  25. SODIUM BICARBONATE [Concomitant]
  26. IMODIUM [Concomitant]
  27. SMECTA [Concomitant]
  28. POTASSIUM [Concomitant]
  29. AMOXICILLIN [Concomitant]
  30. ACETYLSALICYLATE [Concomitant]
  31. ALFUZOSIN [Concomitant]
  32. CO-TRIMOXAZOLE [Concomitant]
  33. PANTOPRAZOLE [Concomitant]

REACTIONS (22)
  - Malnutrition [Fatal]
  - Asthenia [Fatal]
  - Cytomegalovirus infection [Fatal]
  - Pneumonia escherichia [Fatal]
  - Thrombocytopenia [Fatal]
  - Klebsiella infection [Fatal]
  - Bronchial obstruction [Fatal]
  - Escherichia sepsis [Recovered/Resolved]
  - Leukopenia [Recovering/Resolving]
  - Wound dehiscence [Recovered/Resolved]
  - Anaemia [Recovered/Resolved]
  - Renal impairment [Recovered/Resolved]
  - Post procedural haemorrhage [Unknown]
  - Wound complication [Unknown]
  - Anastomotic haemorrhage [Recovered/Resolved]
  - Renal tubular necrosis [Recovering/Resolving]
  - Complications of transplanted kidney [Recovered/Resolved]
  - Diarrhoea [Recovering/Resolving]
  - Renal vessel disorder [Unknown]
  - Impaired healing [Recovered/Resolved]
  - Haemorrhage [Recovered/Resolved]
  - Shock [Recovering/Resolving]
